FAERS Safety Report 11047506 (Version 9)
Quarter: 2016Q3

REPORT INFORMATION
  Report Type: Report from Study
  Country: BR (occurrence: BR)
  Receive Date: 20150420
  Receipt Date: 20160914
  Transmission Date: 20161109
  Serious: Yes (Hospitalization, Other)
  Sender: FDA-Public Use
  Company Number: PHHY2015BR043973

PATIENT
  Age: 35 Year
  Sex: Female
  Weight: 49 kg

DRUGS (5)
  1. FOLIC ACID. [Concomitant]
     Active Substance: FOLIC ACID
     Indication: SICKLE CELL ANAEMIA
     Dosage: 1 DF, QD
     Route: 048
  2. HYDREA [Suspect]
     Active Substance: HYDROXYUREA
     Indication: PRODUCT USED FOR UNKNOWN INDICATION
     Route: 065
  3. OMEPRAZOLE. [Concomitant]
     Active Substance: OMEPRAZOLE
     Indication: PRODUCT USED FOR UNKNOWN INDICATION
     Dosage: 1 DF, QD
     Route: 048
  4. ASPIRIN. [Concomitant]
     Active Substance: ASPIRIN
     Indication: SICKLE CELL ANAEMIA
     Dosage: 1 DF, QD
     Route: 048
  5. EXJADE [Suspect]
     Active Substance: DEFERASIROX
     Indication: SICKLE CELL ANAEMIA
     Dosage: 40 MG/KG, QD (4 TABLETS OF 500 MG)
     Route: 048

REACTIONS (17)
  - Pain [Unknown]
  - Aphasia [Unknown]
  - Serum ferritin increased [Unknown]
  - Spleen disorder [Not Recovered/Not Resolved]
  - Biliary colic [Recovered/Resolved]
  - Wrong technique in product usage process [Unknown]
  - Arthropathy [Recovering/Resolving]
  - Anxiety [Not Recovered/Not Resolved]
  - Inappropriate schedule of drug administration [Unknown]
  - Bone disorder [Recovering/Resolving]
  - Pain in extremity [Recovered/Resolved]
  - Amnesia [Unknown]
  - Fall [Recovered/Resolved]
  - Bladder dilatation [Not Recovered/Not Resolved]
  - Abdominal distension [Not Recovered/Not Resolved]
  - Abasia [Unknown]
  - Diarrhoea [Unknown]

NARRATIVE: CASE EVENT DATE: 201511
